FAERS Safety Report 19993760 (Version 1)
Quarter: 2021Q4

REPORT INFORMATION
  Report Type: Spontaneous
  Country: CA (occurrence: CA)
  Receive Date: 20211025
  Receipt Date: 20211025
  Transmission Date: 20220303
  Serious: Yes (Other)
  Sender: FDA-Public Use
  Company Number: CA-BOEHRINGERINGELHEIM-2021-BI-133395

PATIENT
  Age: 68 Year
  Sex: Male

DRUGS (2)
  1. JARDIANCE [Suspect]
     Active Substance: EMPAGLIFLOZIN
     Indication: Type 2 diabetes mellitus
     Dates: start: 2021
  2. METFORMIN [Concomitant]
     Active Substance: METFORMIN HYDROCHLORIDE
     Indication: Type 2 diabetes mellitus

REACTIONS (9)
  - Penile abscess [Recovering/Resolving]
  - Penile erythema [Recovering/Resolving]
  - Penile infection [Recovering/Resolving]
  - Penile swelling [Recovering/Resolving]
  - Erectile dysfunction [Unknown]
  - Testicular atrophy [Unknown]
  - Semen analysis abnormal [Unknown]
  - Penile discharge [Recovering/Resolving]
  - Penile pain [Recovering/Resolving]

NARRATIVE: CASE EVENT DATE: 20210101
